FAERS Safety Report 4752770-0 (Version None)
Quarter: 2005Q3

REPORT INFORMATION
  Report Type: 
  Country: None (occurrence: None)
  Receive Date: 20050823
  Receipt Date: 20050607
  Transmission Date: 20060218
  Serious: Yes (Other)
  Sender: FDA-Public Use
  Company Number: 2005070021

PATIENT
  Age: 68 Year
  Sex: Female
  Weight: 90.7194 kg

DRUGS (5)
  1. NORVASC [Suspect]
     Indication: HYPERTENSION
     Dosage: 5 MG(5 MG,1 IN 1 D),ORAL
     Route: 048
     Dates: start: 20040101
  2. HYDROCHLOROTHIAZIDE [Suspect]
     Indication: ILL-DEFINED DISORDER
     Dosage: ORAL
     Route: 048
     Dates: end: 20050101
  3. ATENOLOL [Concomitant]
  4. THYROID TAB [Concomitant]
  5. FAMOTIDINE [Concomitant]

REACTIONS (11)
  - BLOOD CREATININE INCREASED [None]
  - BLOOD MAGNESIUM DECREASED [None]
  - BLOOD POTASSIUM DECREASED [None]
  - BLOOD PRESSURE DECREASED [None]
  - BLOOD UREA INCREASED [None]
  - FATIGUE [None]
  - MYALGIA [None]
  - POLLAKIURIA [None]
  - RENAL PAIN [None]
  - SWELLING [None]
  - WEIGHT INCREASED [None]
